FAERS Safety Report 9168675 (Version 1)
Quarter: 2013Q1

REPORT INFORMATION
  Report Type: Report from Study
  Country: AU (occurrence: AU)
  Receive Date: 20130318
  Receipt Date: 20130318
  Transmission Date: 20140127
  Serious: Yes (Life-Threatening, Hospitalization, Other)
  Sender: FDA-Public Use
  Company Number: AU-ASTRAZENECA-2013SE17156

PATIENT
  Age: 0 Week
  Sex: Female
  Weight: 2.4 kg

DRUGS (8)
  1. SEROQUEL XR [Suspect]
     Indication: PSYCHOTIC DISORDER
     Dosage: 300-900 MG DAILY SINCE 21/40 WEEKS
     Route: 064
  2. LITHIUM [Suspect]
     Indication: AFFECTIVE DISORDER
     Dosage: 900-1500 MG/DAY
     Route: 064
  3. ZUCLOPENTHIXOL [Suspect]
     Indication: PSYCHOTIC DISORDER
     Dosage: STOPPED AT 21/40 WEEKS
     Route: 064
  4. ZUCLOPENTHIXOL [Suspect]
     Indication: PSYCHOTIC DISORDER
     Dosage: 300-400 MG, 2/52 DAILY SINCE 29/40 WEEKS
     Route: 064
  5. LABETALOL [Concomitant]
     Indication: HYPERTENSION
     Route: 064
  6. FOLATE [Concomitant]
     Indication: PROPHYLAXIS OF NEURAL TUBE DEFECT
     Route: 064
     Dates: end: 20120901
  7. PREGNANCY MULTIVITAMINS [Concomitant]
     Indication: SUPPLEMENTATION THERAPY
     Route: 064
     Dates: end: 20120901
  8. VITAMIN D [Concomitant]
     Indication: VITAMIN SUPPLEMENTATION
     Route: 064
     Dates: end: 20120901

REACTIONS (2)
  - Respiratory distress [Recovered/Resolved]
  - Drug withdrawal syndrome neonatal [Recovered/Resolved]
